FAERS Safety Report 14643933 (Version 2)
Quarter: 2018Q2

REPORT INFORMATION
  Report Type: Spontaneous
  Country: SE (occurrence: SE)
  Receive Date: 20180315
  Receipt Date: 20180425
  Transmission Date: 20180711
  Serious: Yes (Other)
  Sender: FDA-Public Use
  Company Number: SE-PFIZER INC-2018101809

PATIENT
  Age: 76 Year
  Sex: Male

DRUGS (3)
  1. DIOVAN [Suspect]
     Active Substance: VALSARTAN
     Dosage: UNK
  2. ZYTIGA [Suspect]
     Active Substance: ABIRATERONE ACETATE
     Indication: PROSTATE CANCER METASTATIC
     Dosage: 1000 MG, DAILY
     Route: 048
     Dates: start: 20170201, end: 20171111
  3. CARDIZEM [Suspect]
     Active Substance: DILTIAZEM HYDROCHLORIDE
     Dosage: UNK

REACTIONS (4)
  - Blood pressure increased [Recovering/Resolving]
  - Tachycardia [Unknown]
  - Dizziness postural [Unknown]
  - Syncope [Unknown]

NARRATIVE: CASE EVENT DATE: 2017
